FAERS Safety Report 16117250 (Version 1)
Quarter: 2019Q1

REPORT INFORMATION
  Report Type: Spontaneous
  Country: FR (occurrence: FR)
  Receive Date: 20190326
  Receipt Date: 20190326
  Transmission Date: 20190418
  Serious: Yes (Death)
  Sender: FDA-Public Use
  Company Number: FR-ACCORD-114962

PATIENT
  Sex: Male

DRUGS (4)
  1. OXAZEPAM. [Suspect]
     Active Substance: OXAZEPAM
     Route: 048
  2. QUETIAPINE. [Suspect]
     Active Substance: QUETIAPINE
     Dosage: UNSPECIFIED
     Route: 065
  3. DIAMORPHINE [Suspect]
     Active Substance: DIAMORPHINE
     Dosage: UNSPECIFIED
     Route: 065
  4. COCAINE [Suspect]
     Active Substance: COCAINE
     Dosage: UNSPECIFIED
     Route: 065

REACTIONS (3)
  - Substance abuse [Fatal]
  - Asphyxia [Fatal]
  - Drug abuse [Fatal]

NARRATIVE: CASE EVENT DATE: 2018
